FAERS Safety Report 14204510 (Version 2)
Quarter: 2017Q4

REPORT INFORMATION
  Report Type: Spontaneous
  Country: JP (occurrence: JP)
  Receive Date: 20171120
  Receipt Date: 20171215
  Transmission Date: 20180321
  Serious: Yes (Hospitalization)
  Sender: FDA-Public Use
  Company Number: JP-SA-2017SA228698

PATIENT
  Age: 82 Year
  Sex: Male

DRUGS (2)
  1. BCG FOR IMMUNOTHERAPY [Suspect]
     Active Substance: BACILLUS CALMETTE-GUERIN ANTIGEN, UNSPECIFIED SUBSTRAIN
     Indication: BLADDER CANCER
     Route: 043
  2. IMMUNOBLADDER [Suspect]
     Active Substance: BACILLUS CALMETTE-GUERIN ANTIGEN, UNSPECIFIED SUBSTRAIN
     Indication: BLADDER CANCER
     Route: 043

REACTIONS (7)
  - Disseminated Bacillus Calmette-Guerin infection [Unknown]
  - Decreased appetite [Unknown]
  - General physical health deterioration [Unknown]
  - Mycobacterium tuberculosis complex test positive [Unknown]
  - Pyrexia [Unknown]
  - Granuloma [Unknown]
  - Cough [Unknown]
